FAERS Safety Report 25358998 (Version 1)
Quarter: 2025Q2

REPORT INFORMATION
  Report Type: Spontaneous
  Country: CA (occurrence: CA)
  Receive Date: 20250526
  Receipt Date: 20250526
  Transmission Date: 20250717
  Serious: Yes (Other)
  Sender: AMGEN
  Company Number: CA-BEH-2025205172

PATIENT

DRUGS (1)
  1. TAVNEOS [Suspect]
     Active Substance: AVACOPAN
     Indication: Product used for unknown indication
     Route: 065

REACTIONS (1)
  - Off label use [Unknown]
